FAERS Safety Report 11563654 (Version 1)
Quarter: 2015Q3

REPORT INFORMATION
  Report Type: Spontaneous
  Country: US (occurrence: US)
  Receive Date: 20150916
  Receipt Date: 20150916
  Transmission Date: 20151125
  Serious: No
  Sender: FDA-Public Use
  Company Number: US-ELI_LILLY_AND_COMPANY-US200902002075

PATIENT
  Age: 76 Year
  Sex: Female

DRUGS (4)
  1. TYLENOL /USA/ [Concomitant]
  2. MOTRIN [Concomitant]
     Active Substance: IBUPROFEN
  3. PRILOSEC [Concomitant]
     Active Substance: OMEPRAZOLE MAGNESIUM
  4. FORTEO [Suspect]
     Active Substance: TERIPARATIDE

REACTIONS (2)
  - Pain in extremity [Not Recovered/Not Resolved]
  - Middle insomnia [Not Recovered/Not Resolved]

NARRATIVE: CASE EVENT DATE: 20090208
